FAERS Safety Report 10462957 (Version 1)
Quarter: 2014Q3

REPORT INFORMATION
  Report Type: Spontaneous
  Country: FR (occurrence: FR)
  Receive Date: 20140918
  Receipt Date: 20140918
  Transmission Date: 20150326
  Serious: Yes (Hospitalization)
  Sender: FDA-Public Use
  Company Number: FR-ASTRAZENECA-2014SE69543

PATIENT
  Age: 73 Year
  Sex: Female

DRUGS (9)
  1. INEXIUM [Suspect]
     Active Substance: ESOMEPRAZOLE
     Indication: DUODENAL ULCER
     Route: 048
     Dates: start: 2009
  2. FUROSEMIDE. [Concomitant]
     Active Substance: FUROSEMIDE
  3. KARDEGIC [Suspect]
     Active Substance: ASPIRIN LYSINE
     Route: 065
     Dates: start: 20140828
  4. KARDEGIC [Suspect]
     Active Substance: ASPIRIN LYSINE
     Route: 065
     Dates: end: 20140821
  5. PREVISCAN [Suspect]
     Active Substance: FLUINDIONE
     Route: 065
     Dates: end: 20140821
  6. CRESTOR [Concomitant]
     Active Substance: ROSUVASTATIN CALCIUM
  7. AMIODARONE [Concomitant]
     Active Substance: AMIODARONE
  8. PREVISCAN [Suspect]
     Active Substance: FLUINDIONE
     Route: 065
     Dates: start: 20140828
  9. HYDROCHLOROTHIAZIDE\VALSARTAN [Concomitant]
     Active Substance: HYDROCHLOROTHIAZIDE\VALSARTAN

REACTIONS (4)
  - Iron deficiency anaemia [Not Recovered/Not Resolved]
  - Dyspnoea exertional [Unknown]
  - Gastrointestinal angiodysplasia haemorrhagic [Unknown]
  - Upper gastrointestinal haemorrhage [Not Recovered/Not Resolved]

NARRATIVE: CASE EVENT DATE: 20140819
